FAERS Safety Report 5460591-9 (Version None)
Quarter: 2007Q3

REPORT INFORMATION
  Report Type: 
  Country: None (occurrence: None)
  Receive Date: 20070919
  Receipt Date: 20070909
  Transmission Date: 20080115
  Serious: Yes (Other)
  Sender: FDA-Public Use
  Company Number: US-PFIZER INC-2007075329

PATIENT
  Sex: Female
  Weight: 56.7 kg

DRUGS (4)
  1. TIKOSYN [Suspect]
     Indication: TACHYCARDIA
     Dates: start: 20070401, end: 20070701
  2. COUMADIN [Concomitant]
  3. DIGITEK [Concomitant]
  4. FLOLAN [Concomitant]

REACTIONS (3)
  - CARDIAC ABLATION [None]
  - DIZZINESS [None]
  - NAUSEA [None]
